FAERS Safety Report 14734435 (Version 8)
Quarter: 2018Q2

REPORT INFORMATION
  Report Type: Spontaneous
  Country: SI (occurrence: SI)
  Receive Date: 20180409
  Receipt Date: 20180627
  Transmission Date: 20180711
  Serious: Yes (Other)
  Sender: FDA-Public Use
  Company Number: SI-PFIZER INC-2018141453

PATIENT
  Age: 38 Year
  Sex: Male
  Weight: 66 kg

DRUGS (6)
  1. CONCOR [Suspect]
     Active Substance: BISOPROLOL FUMARATE
     Dosage: 10 MG, QD
     Route: 065
  2. ALDACTONE [Suspect]
     Active Substance: SPIRONOLACTONE
     Dosage: UNK
     Route: 065
  3. ENTRESTO [Suspect]
     Active Substance: SACUBITRIL\VALSARTAN
     Indication: CARDIAC FAILURE
     Dosage: 200 MG, QD
     Route: 065
  4. PROCORALAN [Suspect]
     Active Substance: IVABRADINE
     Dosage: 10 MG, QD
     Route: 065
  5. PANTOPRAZOLE [Suspect]
     Active Substance: PANTOPRAZOLE
     Dosage: UNK
     Route: 065
  6. ALDACTONE [Suspect]
     Active Substance: SPIRONOLACTONE
     Dosage: UNK
     Route: 065

REACTIONS (14)
  - Hypertensive heart disease [Recovering/Resolving]
  - Left ventricular hypertrophy [Recovering/Resolving]
  - Pleural effusion [Unknown]
  - N-terminal prohormone brain natriuretic peptide increased [Recovering/Resolving]
  - Gastrointestinal oedema [Unknown]
  - Cardiomyopathy [Unknown]
  - Cardiac failure [Recovering/Resolving]
  - Hypokinesia [Unknown]
  - Tachycardia [Unknown]
  - Left ventricular dysfunction [Unknown]
  - Alanine aminotransferase increased [Recovering/Resolving]
  - Cardiac murmur [Recovering/Resolving]
  - Aspartate aminotransferase increased [Recovering/Resolving]
  - Bronchial wall thickening [Unknown]

NARRATIVE: CASE EVENT DATE: 2018
